FAERS Safety Report 7571030-6 (Version None)
Quarter: 2011Q2

REPORT INFORMATION
  Report Type: 
  Country: None (occurrence: None)
  Receive Date: 20110624
  Receipt Date: 20110611
  Transmission Date: 20111010
  Serious: Yes (Hospitalization)
  Sender: FDA-Public Use
  Company Number: US-ROCHE-782838

PATIENT
  Age: 59 Year
  Sex: Female
  Weight: 102 kg

DRUGS (2)
  1. BEVACIZUMAB [Suspect]
     Dosage: LAST ADMINISTERED DATE:04/12/2011,TOTAL DOSE THIS COURSE:1020 MG, OVER  30-90MIN ON DAY 1 AND 15.
     Route: 042
  2. TEMSIROLIMUS [Suspect]
     Dosage: FREQUENCY: ON DAY 1,8,15 AND 22. LAST ADMINISTERED DATE: 04/19/2011
     Route: 042

REACTIONS (1)
  - BLOOD CREATININE INCREASED [None]
